APPROVED DRUG PRODUCT: METVIXIA
Active Ingredient: METHYL AMINOLEVULINATE HYDROCHLORIDE
Strength: EQ 16.8% BASE
Dosage Form/Route: CREAM;TOPICAL
Application: N021415 | Product #001
Applicant: GALDERMA LABORATORIES LP
Approved: Jul 27, 2004 | RLD: No | RS: No | Type: DISCN